FAERS Safety Report 7372801-1 (Version None)
Quarter: 2011Q1

REPORT INFORMATION
  Report Type: 
  Country: None (occurrence: None)
  Receive Date: 20110324
  Receipt Date: 20101201
  Transmission Date: 20110831
  Serious: No
  Sender: FDA-Public Use
  Company Number: US-BAUSCH-2010BL006808

PATIENT
  Age: 68 Year
  Sex: Male

DRUGS (6)
  1. DICLOFENAC SODIUM [Suspect]
     Indication: PREOPERATIVE CARE
     Route: 047
     Dates: start: 20101114, end: 20101129
  2. OMNIPRED [Concomitant]
     Indication: PREOPERATIVE CARE
     Route: 047
     Dates: start: 20101114, end: 20101129
  3. DICLOFENAC SODIUM [Suspect]
     Indication: POSTOPERATIVE CARE
     Route: 047
     Dates: start: 20101114, end: 20101129
  4. BESIVANCE [Suspect]
     Indication: PREOPERATIVE CARE
     Route: 047
     Dates: start: 20101114, end: 20101129
  5. BESIVANCE [Suspect]
     Indication: POSTOPERATIVE CARE
     Route: 047
     Dates: start: 20101114, end: 20101129
  6. BESIVANCE [Suspect]
     Indication: OFF LABEL USE
     Route: 047
     Dates: start: 20101114, end: 20101129

REACTIONS (2)
  - OCULAR TOXICITY [None]
  - KERATOPATHY [None]
